FAERS Safety Report 8916120 (Version 2)
Quarter: 2013Q1

REPORT INFORMATION
  Report Type: Spontaneous
  Country: US (occurrence: US)
  Receive Date: 20121120
  Receipt Date: 20130201
  Transmission Date: 20140127
  Serious: No
  Sender: FDA-Public Use
  Company Number: US-ASTRAZENECA-2012SE85091

PATIENT
  Age: 59 Year
  Sex: Male
  Weight: 107 kg

DRUGS (14)
  1. SEROQUEL [Suspect]
     Indication: SLEEP DISORDER
     Route: 048
     Dates: start: 201210
  2. SEROQUEL [Suspect]
     Indication: ANXIETY
     Route: 048
     Dates: start: 201210
  3. SEROQUEL [Suspect]
     Indication: DEPRESSION
     Route: 048
     Dates: start: 201210
  4. SEROQUEL [Suspect]
     Indication: PANIC DISORDER
     Route: 048
     Dates: start: 201210
  5. SEROQUEL [Suspect]
     Indication: SLEEP DISORDER
     Dosage: 50 - 100 MG
     Route: 048
  6. SEROQUEL [Suspect]
     Indication: ANXIETY
     Dosage: 50 - 100 MG
     Route: 048
  7. SEROQUEL [Suspect]
     Indication: DEPRESSION
     Dosage: 50 - 100 MG
     Route: 048
  8. SEROQUEL [Suspect]
     Indication: PANIC DISORDER
     Dosage: 50 - 100 MG
     Route: 048
  9. CITALOPRAM [Concomitant]
     Indication: ANXIETY
     Route: 048
     Dates: start: 20121003, end: 201210
  10. CITALOPRAM [Concomitant]
     Indication: ANXIETY
     Route: 048
     Dates: start: 201210
  11. LORAZEPAM [Concomitant]
     Indication: ANXIETY
     Route: 048
     Dates: start: 20121019
  12. ASPIRIN [Concomitant]
     Indication: MYOCARDIAL INFARCTION
     Route: 048
     Dates: start: 201011
  13. CLOPIDOGREL [Concomitant]
     Indication: ANTICOAGULANT THERAPY
     Route: 048
     Dates: start: 201011
  14. SIMVASTATIN [Concomitant]
     Indication: BLOOD CHOLESTEROL ABNORMAL
     Route: 048
     Dates: start: 201011

REACTIONS (4)
  - Insomnia [Unknown]
  - Anxiety [Unknown]
  - Burning sensation [Unknown]
  - Drug ineffective [Unknown]
